FAERS Safety Report 16958995 (Version 2)
Quarter: 2019Q4

REPORT INFORMATION
  Report Type: Report from Study
  Country: US (occurrence: US)
  Receive Date: 20191024
  Receipt Date: 20191104
  Transmission Date: 20200122
  Serious: Yes (Hospitalization, Other)
  Sender: FDA-Public Use
  Company Number: US-GILEAD-2019-0415024

PATIENT
  Age: 50 Year
  Sex: Female
  Weight: 119.7 kg

DRUGS (10)
  1. CYCLOPHOSPHAMIDE. [Suspect]
     Active Substance: CYCLOPHOSPHAMIDE
     Indication: BONE MARROW CONDITIONING REGIMEN
     Dosage: 1175 MG, QD X 3
     Route: 042
     Dates: start: 20190619, end: 20190621
  2. TRAMADOL. [Concomitant]
     Active Substance: TRAMADOL
     Dosage: 50,MG,OTHER
     Route: 048
     Dates: start: 20190619, end: 20190719
  3. ONDANSETRON [Concomitant]
     Active Substance: ONDANSETRON
     Dosage: UNK
     Dates: start: 20190624, end: 20190709
  4. ONDANSETRON [Concomitant]
     Active Substance: ONDANSETRON
     Dosage: 12,MG,OTHER
     Route: 041
     Dates: start: 20190619, end: 20190621
  5. FLUDARABINE [Suspect]
     Active Substance: FLUDARABINE PHOSPHATE
     Indication: BONE MARROW CONDITIONING REGIMEN
     Dosage: 71 MG, QD
     Route: 042
     Dates: start: 20190619, end: 20190621
  6. MORPHINE [Concomitant]
     Active Substance: MORPHINE
     Dosage: 4,MG,OTHER
     Route: 041
     Dates: start: 20190621, end: 20190621
  7. AXICABTAGENE CILOLEUCEL [Suspect]
     Active Substance: AXICABTAGENE CILOLEUCEL
     Indication: NON-HODGKIN^S LYMPHOMA
     Dosage: 68 ML
     Route: 042
     Dates: start: 20190625, end: 20190625
  8. PROTONIX [OMEPRAZOLE] [Concomitant]
     Active Substance: OMEPRAZOLE
  9. HYDROMORPHONE [Concomitant]
     Active Substance: HYDROMORPHONE
     Dosage: 2,MG,OTHER
     Route: 041
     Dates: start: 20190621, end: 20190622
  10. HYDROMORPHONE [Concomitant]
     Active Substance: HYDROMORPHONE
     Dosage: 0.5,MG,FOUR TIMES DAILY
     Route: 041
     Dates: start: 20190622, end: 20190622

REACTIONS (7)
  - Cytokine release syndrome [Recovered/Resolved]
  - Communication disorder [Recovered/Resolved]
  - Deep vein thrombosis [Not Recovered/Not Resolved]
  - Agitation [Recovered/Resolved]
  - Pyrexia [Recovered/Resolved]
  - Speech disorder [Recovered/Resolved]
  - Deep vein thrombosis [Recovering/Resolving]

NARRATIVE: CASE EVENT DATE: 20190626
